FAERS Safety Report 4308523-0 (Version None)
Quarter: 2004Q1

REPORT INFORMATION
  Report Type: 
  Country: None (occurrence: None)
  Receive Date: 20040301
  Receipt Date: 20040224
  Transmission Date: 20041129
  Serious: Yes (Disabling)
  Sender: FDA-Public Use
  Company Number: FR-BRISTOL-MYERS SQUIBB COMPANY-12517355

PATIENT
  Age: 71 Year
  Sex: Female

DRUGS (1)
  1. MODECATE INJ [Suspect]
     Route: 030

REACTIONS (2)
  - DECUBITUS ULCER [None]
  - EXTRAPYRAMIDAL DISORDER [None]
